FAERS Safety Report 8883371 (Version 1)
Quarter: 2012Q4

REPORT INFORMATION
  Report Type: 
  Country: US (occurrence: US)
  Receive Date: 20121102
  Receipt Date: 20121102
  Transmission Date: 20130627
  Serious: No
  Sender: FDA-Public Use
  Company Number: US-ASTRAZENECA-2012SE09631

PATIENT
  Age: 70 Year
  Sex: Male

DRUGS (5)
  1. CRESTOR [Suspect]
     Indication: HYPERLIPIDAEMIA
     Route: 048
  2. CRESTOR [Suspect]
     Indication: HYPERLIPIDAEMIA
     Route: 048
  3. CRESTOR [Suspect]
     Indication: HYPERLIPIDAEMIA
     Route: 048
  4. METOPROLOL SUCCINATE [Suspect]
     Indication: MYOCARDIAL INFARCTION
     Route: 048
  5. BABY ASPIRIN [Concomitant]

REACTIONS (3)
  - Insomnia [Unknown]
  - Nightmare [Unknown]
  - Drug ineffective [Unknown]
